FAERS Safety Report 24136060 (Version 1)
Quarter: 2024Q3

REPORT INFORMATION
  Report Type: Spontaneous
  Country: FR (occurrence: FR)
  Receive Date: 20240725
  Receipt Date: 20240725
  Transmission Date: 20241017
  Serious: Yes (Hospitalization)
  Sender: ABBVIE
  Company Number: None

PATIENT
  Age: 26 Year
  Sex: Female

DRUGS (4)
  1. VENETOCLAX [Suspect]
     Active Substance: VENETOCLAX
     Indication: Acute myeloid leukaemia
     Dosage: VENCLYXTO 100 MG, FILM-COATED TABLET
     Route: 048
     Dates: start: 20240213, end: 20240228
  2. AZACITIDINE [Suspect]
     Active Substance: AZACITIDINE
     Indication: Acute myeloid leukaemia
     Dosage: 75MG/M? DAY 1 TO?DAY 7 (DAY1=DAY28)
     Route: 058
     Dates: start: 20240213, end: 20240218
  3. AZACITIDINE [Suspect]
     Active Substance: AZACITIDINE
     Indication: Acute myeloid leukaemia
     Dosage: 75MG/M? DAY 1 TO?DAY 7 (DAY1=DAY28)
     Route: 058
     Dates: start: 20240311, end: 20240317
  4. SORAFENIB [Suspect]
     Active Substance: SORAFENIB
     Indication: Acute myeloid leukaemia
     Dosage: DAY 1 TO DAY 28
     Route: 048
     Dates: start: 20240214, end: 20240325

REACTIONS (1)
  - Peripheral sensorimotor neuropathy [Not Recovered/Not Resolved]

NARRATIVE: CASE EVENT DATE: 20240201
